FAERS Safety Report 15596437 (Version 1)
Quarter: 2018Q4

REPORT INFORMATION
  Report Type: Spontaneous
  Country: US (occurrence: US)
  Receive Date: 20181107
  Receipt Date: 20181107
  Transmission Date: 20190205
  Serious: No
  Sender: FDA-Public Use
  Company Number: US-ALLERGAN-1769405US

PATIENT
  Sex: Female

DRUGS (3)
  1. BACTROBAN [Concomitant]
     Active Substance: MUPIROCIN\MUPIROCIN CALCIUM
     Dosage: UNK
     Route: 065
  2. TEFLARO [Suspect]
     Active Substance: CEFTAROLINE FOSAMIL
     Indication: PRODUCT USED FOR UNKNOWN INDICATION
     Dosage: 600 MG, Q12H
     Route: 042
     Dates: start: 20171115, end: 20171115
  3. FLAGYL [Concomitant]
     Active Substance: METRONIDAZOLE\METRONIDAZOLE HYDROCHLORIDE
     Dosage: UNK
     Route: 065

REACTIONS (1)
  - Inappropriate schedule of product administration [Unknown]
